FAERS Safety Report 9510941 (Version 1)
Quarter: 2013Q3

REPORT INFORMATION
  Report Type: Spontaneous
  Country: US (occurrence: US)
  Receive Date: 20130910
  Receipt Date: 20130910
  Transmission Date: 20140515
  Serious: No
  Sender: FDA-Public Use
  Company Number: US-009507513-1309USA003243

PATIENT
  Sex: 0

DRUGS (1)
  1. NASONEX [Suspect]
     Dosage: 2 DF, QD (ONE SPRAY IN EACH NOSTRIL ONCE A DAY)
     Route: 045
     Dates: start: 20130903

REACTIONS (3)
  - Product quality issue [Unknown]
  - Drug dose omission [Unknown]
  - No adverse event [Unknown]
